FAERS Safety Report 25417376 (Version 2)
Quarter: 2025Q3

REPORT INFORMATION
  Report Type: Spontaneous
  Country: EU (occurrence: EU)
  Receive Date: 20250610
  Receipt Date: 20250702
  Transmission Date: 20251021
  Serious: Yes (Other)
  Sender: PFIZER
  Company Number: EU-SANDOZ-SDZ2025SK036928

PATIENT
  Age: 16 Year
  Sex: Male
  Weight: 47 kg

DRUGS (4)
  1. INFLIXIMAB [Suspect]
     Active Substance: INFLIXIMAB
     Indication: Tumour necrosis
     Dates: start: 202308
  2. INFLIXIMAB [Suspect]
     Active Substance: INFLIXIMAB
     Indication: Crohn^s disease
     Dates: start: 202310
  3. VITAMIN B12 [Concomitant]
     Active Substance: CYANOCOBALAMIN
  4. IRON [Concomitant]
     Active Substance: IRON
     Route: 042

REACTIONS (16)
  - Drug specific antibody present [Unknown]
  - Drug level below therapeutic [Unknown]
  - Tonsillar disorder [Unknown]
  - Appendix disorder [Unknown]
  - Intestinal resection [Unknown]
  - Large intestinal stenosis [Unknown]
  - Abscess intestinal [Unknown]
  - Ileal stenosis [Unknown]
  - Colitis [Unknown]
  - Large intestinal ulcer [Unknown]
  - Hypersensitivity [Unknown]
  - Oedema mucosal [Unknown]
  - Chronic gastritis [Unknown]
  - Lymphadenopathy [Unknown]
  - Weight increased [Unknown]
  - Body mass index increased [Unknown]

NARRATIVE: CASE EVENT DATE: 20240201
